FAERS Safety Report 5482138-3 (Version None)
Quarter: 2007Q4

REPORT INFORMATION
  Report Type: 
  Country: None (occurrence: None)
  Receive Date: 20071011
  Receipt Date: 20071004
  Transmission Date: 20080405
  Serious: Yes (Life-Threatening, Hospitalization, Other)
  Sender: FDA-Public Use
  Company Number: US-JNJFOC-20071000555

PATIENT
  Sex: Female
  Weight: 56.7 kg

DRUGS (17)
  1. TOPAMAX [Suspect]
     Dosage: WEANED BY 50 MG EVERY TWO DAYS
     Route: 050
  2. TOPAMAX [Suspect]
     Route: 050
  3. TOPAMAX [Suspect]
     Route: 050
  4. TOPAMAX [Suspect]
     Indication: STATUS EPILEPTICUS
     Route: 050
  5. PHENOBARBITAL TAB [Concomitant]
     Indication: STATUS EPILEPTICUS
     Route: 050
  6. LORAZEPAM [Concomitant]
  7. TRANXENE [Concomitant]
  8. MAGNESIUM SULFATE [Concomitant]
     Route: 050
  9. POTASSIUM CHLORIDE [Concomitant]
     Route: 050
  10. SODIUM [Concomitant]
     Route: 050
  11. PYRIDOXINE HCL [Concomitant]
     Route: 048
  12. ZANTAC [Concomitant]
     Route: 048
  13. CALCIUM [Concomitant]
     Route: 050
  14. IRON [Concomitant]
     Route: 050
  15. LOVENOX [Concomitant]
  16. ACETAMINOPHEN [Concomitant]
     Route: 050
  17. MIRALAX [Concomitant]

REACTIONS (12)
  - APLASTIC ANAEMIA [None]
  - COGNITIVE DISORDER [None]
  - ELECTROLYTE IMBALANCE [None]
  - EUTHYROID SICK SYNDROME [None]
  - EXTRASYSTOLES [None]
  - HAEMATOCRIT DECREASED [None]
  - HAEMOGLOBIN DECREASED [None]
  - MEMORY IMPAIRMENT [None]
  - MENTAL IMPAIRMENT [None]
  - PLATELET COUNT INCREASED [None]
  - THROMBOCYTOPENIA [None]
  - WHITE BLOOD CELL COUNT DECREASED [None]
